FAERS Safety Report 20850280 (Version 1)
Quarter: 2022Q2

REPORT INFORMATION
  Report Type: Spontaneous
  Country: RU (occurrence: RU)
  Receive Date: 20220519
  Receipt Date: 20220519
  Transmission Date: 20220721
  Serious: Yes (Death, Other)
  Sender: FDA-Public Use
  Company Number: RU-Merck Healthcare KGaA-9322120

PATIENT
  Sex: Male

DRUGS (7)
  1. ERBITUX [Suspect]
     Active Substance: CETUXIMAB
     Indication: Colorectal cancer metastatic
     Dosage: (10 COURSES)
     Route: 065
     Dates: start: 20181213
  2. ERBITUX [Suspect]
     Active Substance: CETUXIMAB
     Dosage: 4TH LINE TREATMENT (8 - 10 COURSES)
     Route: 065
     Dates: start: 20201012
  3. ERBITUX [Suspect]
     Active Substance: CETUXIMAB
     Dosage: UNK UNK, UNKNOWN
     Route: 065
     Dates: start: 20210208
  4. ERBITUX [Suspect]
     Active Substance: CETUXIMAB
     Dosage: 4TH COURSE (MONOREGIMEN
     Route: 065
     Dates: start: 20210609
  5. IRINOTECAN [Concomitant]
     Active Substance: IRINOTECAN
     Indication: Colorectal cancer metastatic
     Dosage: 150-180 MG/M2 (10 COURSES)
     Dates: start: 20181213
  6. IRINOTECAN [Concomitant]
     Active Substance: IRINOTECAN
     Dosage: 4TH TREATMENT LINE (8 TO 10 COURSES)
     Dates: start: 20201012
  7. IRINOTECAN [Concomitant]
     Active Substance: IRINOTECAN
     Dosage: UNK UNK, UNKNOWN
     Dates: start: 20210208

REACTIONS (2)
  - Death [Fatal]
  - Malignant neoplasm progression [Unknown]

NARRATIVE: CASE EVENT DATE: 20220127
